FAERS Safety Report 6403705-6 (Version None)
Quarter: 2009Q4

REPORT INFORMATION
  Report Type: 
  Country: None (occurrence: None)
  Receive Date: 20091016
  Receipt Date: 20091009
  Transmission Date: 20100525
  Serious: Yes (Hospitalization)
  Sender: FDA-Public Use
  Company Number: JP-BAYER-200912894BYL

PATIENT
  Age: 74 Year
  Sex: Male
  Weight: 45 kg

DRUGS (5)
  1. NEXAVAR [Suspect]
     Indication: HEPATIC NEOPLASM MALIGNANT
     Dosage: TOTAL DAILY DOSE: 800 MG  UNIT DOSE: 200 MG
     Route: 048
     Dates: start: 20090622, end: 20090708
  2. AMINOLEBAN [Concomitant]
     Route: 042
     Dates: start: 20090617, end: 20090621
  3. OMEPRAL [Concomitant]
     Route: 048
     Dates: start: 20090220
  4. NAIXAN [Concomitant]
     Route: 048
     Dates: start: 20090617
  5. LASIX [Concomitant]
     Route: 048
     Dates: start: 20090701

REACTIONS (4)
  - HEPATIC FUNCTION ABNORMAL [None]
  - HYPERTENSION [None]
  - RASH [None]
  - WHITE BLOOD CELL COUNT INCREASED [None]
